FAERS Safety Report 9465280 (Version 1)
Quarter: 2013Q3

REPORT INFORMATION
  Report Type: Spontaneous
  Country: DK (occurrence: DK)
  Receive Date: 20130819
  Receipt Date: 20130819
  Transmission Date: 20140515
  Serious: Yes (Other)
  Sender: FDA-Public Use
  Company Number: PHHY2013DK087408

PATIENT
  Age: 47 Year
  Sex: Female

DRUGS (2)
  1. DICLOXACILLIN [Suspect]
     Indication: SINUSITIS
     Dosage: UNK
     Dates: start: 201212
  2. DICLOXACILLIN [Suspect]
     Indication: PNEUMONIA
     Dosage: UNK
     Dates: start: 201303

REACTIONS (3)
  - Pharyngeal oedema [Recovered/Resolved]
  - Dry throat [Recovered/Resolved]
  - Dyspnoea [Recovered/Resolved]
